FAERS Safety Report 7809345-6 (Version None)
Quarter: 2011Q4

REPORT INFORMATION
  Report Type: 
  Country: None (occurrence: None)
  Receive Date: 20111006
  Receipt Date: 20110924
  Transmission Date: 20120403
  Serious: Yes (Hospitalization)
  Sender: FDA-Public Use
  Company Number: 2011AP002174

PATIENT
  Age: 78 Year
  Sex: Male

DRUGS (1)
  1. CARBAMAZEPINE [Suspect]
     Indication: DEMENTIA
     Dosage: 200 MG;BID, 100 MG;BID

REACTIONS (6)
  - DIARRHOEA [None]
  - COUGH [None]
  - CHOKING [None]
  - DELIRIUM [None]
  - DRUG RASH WITH EOSINOPHILIA AND SYSTEMIC SYMPTOMS [None]
  - ANAEMIA [None]
